FAERS Safety Report 5204786-8 (Version None)
Quarter: 2007Q1

REPORT INFORMATION
  Report Type: 
  Country: None (occurrence: None)
  Receive Date: 20070110
  Receipt Date: 20060816
  Transmission Date: 20070707
  Serious: No
  Sender: FDA-Public Use
  Company Number: US-BRISTOL-MYERS SQUIBB COMPANY-13446232

PATIENT
  Age: 24 Year
  Sex: Female

DRUGS (4)
  1. ABILIFY [Suspect]
     Indication: BIPOLAR DISORDER
     Route: 048
  2. LAMICTAL [Concomitant]
     Dates: end: 20060417
  3. REMERON [Concomitant]
     Dates: end: 20060417
  4. BUPROPION HCL [Concomitant]
     Dates: start: 20060525

REACTIONS (2)
  - BIPOLAR DISORDER [None]
  - PREGNANCY [None]
